FAERS Safety Report 6785824-8 (Version None)
Quarter: 2010Q2

REPORT INFORMATION
  Report Type: 
  Country: None (occurrence: None)
  Receive Date: 20100623
  Receipt Date: 20100610
  Transmission Date: 20101027
  Serious: Yes (Other)
  Sender: FDA-Public Use
  Company Number: US-PFIZER INC-2010073349

PATIENT
  Age: 27 Year
  Sex: Female

DRUGS (2)
  1. CHANTIX [Suspect]
  2. IBUPROFEN [Suspect]
     Dosage: UNK

REACTIONS (2)
  - MULTIPLE DRUG OVERDOSE INTENTIONAL [None]
  - SUICIDE ATTEMPT [None]
